FAERS Safety Report 15883672 (Version 1)
Quarter: 2019Q1

REPORT INFORMATION
  Report Type: Spontaneous
  Country: US (occurrence: US)
  Receive Date: 20190129
  Receipt Date: 20190129
  Transmission Date: 20190417
  Serious: Yes (Hospitalization, Other)
  Sender: FDA-Public Use
  Company Number: US-009507513-1901USA008986

PATIENT
  Age: 71 Year
  Sex: Female

DRUGS (1)
  1. KEYTRUDA [Suspect]
     Active Substance: PEMBROLIZUMAB
     Indication: BONE GIANT CELL TUMOUR MALIGNANT
     Dosage: UNK
     Dates: start: 201604

REACTIONS (5)
  - Off label use [Unknown]
  - Thyroiditis [Unknown]
  - Acute myocardial infarction [Unknown]
  - Hypothyroidism [Unknown]
  - Hepatotoxicity [Unknown]

NARRATIVE: CASE EVENT DATE: 201604
